FAERS Safety Report 7008749-1 (Version None)
Quarter: 2010Q3

REPORT INFORMATION
  Report Type: 
  Country: None (occurrence: None)
  Receive Date: 20100922
  Receipt Date: 20100915
  Transmission Date: 20110219
  Serious: Yes (Hospitalization)
  Sender: FDA-Public Use
  Company Number: FR-AMGEN-KDC438551

PATIENT
  Sex: Male

DRUGS (4)
  1. DENOSUMAB [Suspect]
     Indication: METASTASES TO BONE
     Route: 058
     Dates: start: 20100323
  2. DARBEPOETIN ALFA [Suspect]
     Route: 058
     Dates: start: 20100903, end: 20100903
  3. ACETYLSALICYLATE LYSINE [Suspect]
     Route: 048
     Dates: start: 20100823, end: 20100905
  4. LEUPRORELIN [Concomitant]
     Route: 058
     Dates: start: 20100903

REACTIONS (1)
  - HAEMATURIA [None]
